FAERS Safety Report 15835050 (Version 1)
Quarter: 2019Q1

REPORT INFORMATION
  Report Type: Spontaneous
  Country: US (occurrence: US)
  Receive Date: 20190116
  Receipt Date: 20190116
  Transmission Date: 20190417
  Serious: No
  Sender: FDA-Public Use
  Company Number: US-CHILTERN-US-2018-000150

PATIENT
  Age: 92 Year
  Sex: Female

DRUGS (5)
  1. ALPHAGAN P [Concomitant]
     Active Substance: BRIMONIDINE TARTRATE
     Indication: GLAUCOMA
     Dosage: UNK, TID
     Route: 047
  2. LIPITOR [Concomitant]
     Active Substance: ATORVASTATIN CALCIUM
     Indication: BLOOD CHOLESTEROL INCREASED
     Dosage: 10 MG, EVERY OTHER DAY
     Route: 048
  3. BETOPTIC S [Concomitant]
     Active Substance: BETAXOLOL HYDROCHLORIDE
     Indication: GLAUCOMA
     Dosage: UNK, BID
     Route: 047
  4. RHOPRESSA [Suspect]
     Active Substance: NETARSUDIL MESYLATE
     Indication: INTRAOCULAR PRESSURE INCREASED
     Dosage: 1 GTT, QD
     Route: 047
  5. ALBUTEROL                          /00139501/ [Concomitant]
     Active Substance: ALBUTEROL
     Indication: CHRONIC OBSTRUCTIVE PULMONARY DISEASE
     Dosage: UNK, PRN
     Route: 048

REACTIONS (2)
  - Intraocular pressure increased [Not Recovered/Not Resolved]
  - Visual acuity reduced [Not Recovered/Not Resolved]
